FAERS Safety Report 15378222 (Version 2)
Quarter: 2018Q3

REPORT INFORMATION
  Report Type: Report from Study
  Country: US (occurrence: US)
  Receive Date: 20180913
  Receipt Date: 20180921
  Transmission Date: 20181010
  Serious: Yes (Hospitalization)
  Sender: FDA-Public Use
  Company Number: US-AEGERION PHARMACEUTICAL, INC-AEGR003966

PATIENT
  Sex: Female
  Weight: 87.75 kg

DRUGS (3)
  1. MYALEPT [Suspect]
     Active Substance: METRELEPTIN
     Indication: CONGENITAL GENERALISED LIPODYSTROPHY
     Dosage: UNK
  2. MYALEPT [Suspect]
     Active Substance: METRELEPTIN
     Dosage: 0.8 MG, BID
     Dates: start: 201806
  3. MYALEPT [Suspect]
     Active Substance: METRELEPTIN
     Dosage: 5 MG/ML, BID
     Route: 058

REACTIONS (4)
  - Pancreatitis [Unknown]
  - Psoriasis [Unknown]
  - Depression [Unknown]
  - Blood triglycerides increased [Unknown]

NARRATIVE: CASE EVENT DATE: 2018
